FAERS Safety Report 5421339-7 (Version None)
Quarter: 2007Q3

REPORT INFORMATION
  Report Type: 
  Country: None (occurrence: None)
  Receive Date: 20070817
  Receipt Date: 20070807
  Transmission Date: 20080115
  Serious: Yes (Hospitalization, Disabling)
  Sender: FDA-Public Use
  Company Number: 236544K07USA

PATIENT
  Age: 36 Year
  Sex: Male

DRUGS (1)
  1. REBIF [Suspect]
     Indication: MULTIPLE SCLEROSIS
     Dosage: 44 MCG, 3 IN 1 WEEKS, SUBCUTANEOUS
     Route: 058
     Dates: start: 20060726, end: 20070501

REACTIONS (5)
  - BRAIN NEOPLASM [None]
  - CONVULSION [None]
  - MEMORY IMPAIRMENT [None]
  - PNEUMONIA [None]
  - WHEELCHAIR USER [None]
